FAERS Safety Report 16216472 (Version 1)
Quarter: 2019Q2

REPORT INFORMATION
  Report Type: Spontaneous
  Country: BE (occurrence: BE)
  Receive Date: 20190419
  Receipt Date: 20190419
  Transmission Date: 20190711
  Serious: Yes (Hospitalization)
  Sender: FDA-Public Use
  Company Number: BE-PFIZER INC-2019161327

PATIENT
  Age: 63 Year
  Sex: Male

DRUGS (6)
  1. PACLITAXEL. [Suspect]
     Active Substance: PACLITAXEL
     Indication: PENILE SQUAMOUS CELL CARCINOMA
     Dosage: UNK UNK, EVERY 3 WEEKS  (D1: PACLITAXEL/CARBO/IFOSFAMIDE (+UROMITEXAN), D2: IFOSFAMIDE, D3: IFOSFA
     Dates: start: 20190215, end: 20190215
  2. IFOSFAMIDE. [Suspect]
     Active Substance: IFOSFAMIDE
     Indication: PENILE SQUAMOUS CELL CARCINOMA
     Dosage: 6768 MG, EVERY 3 WEEKS (D1: PACLI/CARBO/IFOSFAMIDE (+UROMITEXAN), D2: IFOSFAMIDE, D3: IFOSFAMIDE
     Route: 042
     Dates: start: 20190215, end: 20190216
  3. XARELTO [Concomitant]
     Active Substance: RIVAROXABAN
     Dosage: 20 MG, UNK
  4. CARBOPLATIN. [Suspect]
     Active Substance: CARBOPLATIN
     Indication: PENILE SQUAMOUS CELL CARCINOMA
     Dosage: UNK UNK, EVERY 3 WEEKS  (D1: PACLI/CARBOPLATIN/IFOSFAMIDE (+UROMITEXAN), D2: IFOSFAMIDE, D3: IFOSFA
     Dates: start: 20190215, end: 20190215
  5. MESNA. [Suspect]
     Active Substance: MESNA
     Indication: PENILE SQUAMOUS CELL CARCINOMA
     Dosage: UNK UNK, EVERY 3 WEEKS, (D1: PACLI/CARBO/IFOSFAMIDE (+UROMITEXAN), D2: IFOSFAMIDE, D3: IFOSFAMIDE
     Dates: start: 20190215, end: 20190215
  6. BISOPROLOL [Concomitant]
     Active Substance: BISOPROLOL
     Dosage: 5 MG, UNK

REACTIONS (1)
  - Encephalopathy [Recovered/Resolved]

NARRATIVE: CASE EVENT DATE: 20190217
